FAERS Safety Report 5335756-7 (Version None)
Quarter: 2007Q1

REPORT INFORMATION
  Report Type: 
  Country: None (occurrence: None)
  Receive Date: 20070322
  Receipt Date: 20061219
  Transmission Date: 20070707
  Serious: No
  Sender: FDA-Public Use
  Company Number: 2006US002930

PATIENT
  Age: 73 Year
  Sex: Female

DRUGS (7)
  1. VESICARE [Suspect]
     Indication: POLLAKIURIA
     Dosage: 5 MG, UID/QD, ORAL
     Route: 048
     Dates: start: 20051201, end: 20060125
  2. HYDROCHLOROTHIAZIDE [Concomitant]
  3. PREMARIN [Concomitant]
  4. KLOR-CON [Concomitant]
  5. FOSAMAX [Concomitant]
  6. DETROL [Concomitant]
  7. ENABLEX [Concomitant]

REACTIONS (2)
  - CONSTIPATION [None]
  - DRUG INEFFECTIVE [None]
